FAERS Safety Report 10967848 (Version 1)
Quarter: 2015Q1

REPORT INFORMATION
  Report Type: Spontaneous
  Country: PL (occurrence: PL)
  Receive Date: 20150330
  Receipt Date: 20150330
  Transmission Date: 20150721
  Serious: Yes (Other)
  Sender: FDA-Public Use
  Company Number: PL-GLAXOSMITHKLINE-PL2015GSK041492

PATIENT
  Age: 32 Year
  Sex: Female

DRUGS (4)
  1. METRONIDAZOLE. [Suspect]
     Active Substance: METRONIDAZOLE
     Indication: PERITONSILLAR ABSCESS
     Dosage: 500 MG, TID
  2. AMOXICILLIN + CLAVULANIC ACID [Suspect]
     Active Substance: AMOXICILLIN\CLAVULANIC ACID
     Indication: ACUTE TONSILLITIS
     Dosage: 1000 MG, BID
  3. CEFUROXIME. [Suspect]
     Active Substance: CEFUROXIME
     Indication: PERITONSILLAR ABSCESS
     Dosage: 500 MG, BID
  4. CEFUROXIME. [Suspect]
     Active Substance: CEFUROXIME
     Dosage: 500 MG, QD

REACTIONS (15)
  - Streptococcus test positive [Recovering/Resolving]
  - C-reactive protein increased [Unknown]
  - Lymphadenopathy [Unknown]
  - Odynophagia [Unknown]
  - Exposure during breast feeding [Unknown]
  - Palatal disorder [Recovered/Resolved]
  - Oropharyngeal pain [Unknown]
  - Streptococcal abscess [Recovering/Resolving]
  - Joint swelling [Recovered/Resolved]
  - Arthritis reactive [Unknown]
  - Leukocytosis [Unknown]
  - Peritonsillar abscess [Recovering/Resolving]
  - Pyrexia [Recovering/Resolving]
  - Tonsillar inflammation [Recovered/Resolved]
  - Arthralgia [Recovered/Resolved]
